FAERS Safety Report 12582951 (Version 1)
Quarter: 2016Q3

REPORT INFORMATION
  Report Type: Spontaneous
  Country: FR (occurrence: FR)
  Receive Date: 20160722
  Receipt Date: 20160722
  Transmission Date: 20161109
  Serious: Yes (Hospitalization)
  Sender: FDA-Public Use
  Company Number: FR-OCTA-ALB01316FR

PATIENT
  Age: 4 Year
  Sex: Female
  Weight: 17 kg

DRUGS (4)
  1. ORACILLINE [Concomitant]
     Active Substance: PENICILLIN V
     Indication: PRODUCT USED FOR UNKNOWN INDICATION
     Route: 048
  2. SIKLOS [Concomitant]
     Active Substance: HYDROXYUREA
     Indication: PRODUCT USED FOR UNKNOWN INDICATION
     Dosage: ALTERNATION BETWEEN 300 MG AND 400 MG
     Route: 048
  3. SPECIAFOLDINE [Concomitant]
     Active Substance: FOLIC ACID
     Indication: PRODUCT USED FOR UNKNOWN INDICATION
     Route: 048
  4. ALBUNORM 5%, 50 G/L [Suspect]
     Active Substance: ALBUMIN HUMAN
     Indication: FLUID REPLACEMENT
     Route: 042
     Dates: start: 20160624, end: 20160624

REACTIONS (8)
  - Cough [Recovered/Resolved]
  - Respiratory distress [Recovered/Resolved]
  - Dysphonia [Recovered/Resolved]
  - Dyspnoea [Recovered/Resolved]
  - Vomiting [Recovered/Resolved]
  - Tachycardia [Recovered/Resolved]
  - Angioedema [Recovered/Resolved]
  - Hypotension [Recovered/Resolved]

NARRATIVE: CASE EVENT DATE: 20160624
